FAERS Safety Report 9523284 (Version 6)
Quarter: 2014Q3

REPORT INFORMATION
  Report Type: Other
  Country: FR (occurrence: FR)
  Receive Date: 20130913
  Receipt Date: 20140822
  Transmission Date: 20150326
  Serious: Yes (Hospitalization)
  Sender: FDA-Public Use
  Company Number: FR-VERTEX PHARMACEUTICALS INC-2013-009552

PATIENT
  Age: 59 Year
  Sex: Male
  Weight: 60 kg

DRUGS (11)
  1. AERIUS [Concomitant]
     Active Substance: DESLORATADINE
     Indication: RHINITIS ALLERGIC
     Dosage: 5 MG, QD
     Route: 045
     Dates: start: 20130517
  2. SUBUTEX [Concomitant]
     Active Substance: BUPRENORPHINE HYDROCHLORIDE
     Indication: DRUG DEPENDENCE
     Dosage: 1/2 TABLET 3 PER DAY (TOTAL DAILY DOSE 0.6 MG)
     Route: 048
     Dates: start: 1988
  3. PEGASYS [Suspect]
     Active Substance: PEGINTERFERON ALFA-2A
     Indication: HEPATITIS C
     Dosage: 180 ?G, QW
     Route: 058
     Dates: start: 20130517, end: 20130726
  4. NEORECORMON [Concomitant]
     Active Substance: ERYTHROPOIETIN
     Indication: ANAEMIA
     Dosage: THE DOSE WAS GIVEN UI (UNABLE TO MAKE OUT)
     Route: 058
     Dates: start: 20130627
  5. GLYCEROL\PARAFFIN [Concomitant]
     Active Substance: GLYCERIN\PARAFFIN
     Indication: RASH
     Dosage: 0.05 %, UNK
     Route: 061
     Dates: start: 20130715
  6. COPEGUS [Suspect]
     Active Substance: RIBAVIRIN
     Dosage: 400 MG AND 200 MG PER DAY
     Route: 048
     Dates: end: 20130814
  7. POTASSIUM CHLORIDE. [Concomitant]
     Active Substance: POTASSIUM CHLORIDE
     Indication: HYPOKALAEMIA
     Dosage: TOTAL DOSE ADMINISTERED 5400 MG FOR 3 DAYS
     Route: 048
     Dates: start: 20130729
  8. INCIVO [Suspect]
     Active Substance: TELAPREVIR
     Indication: HEPATITIS C
     Dosage: TOTAL DAILY DOSE: 2250 MG (375 MG 3 TABLETS TWO TIMES A DAY)
     Route: 048
     Dates: start: 20130517, end: 20130730
  9. PEGASYS [Suspect]
     Active Substance: PEGINTERFERON ALFA-2A
     Dosage: 180 ?G, QW
     Route: 058
     Dates: end: 20130814
  10. COPEGUS [Suspect]
     Active Substance: RIBAVIRIN
     Indication: HEPATITIS C
     Dosage: 400 MG, BID
     Route: 048
     Dates: start: 20130517
  11. DIPROSONE [Concomitant]
     Active Substance: BETAMETHASONE DIPROPIONATE
     Indication: RASH
     Dosage: THE DOSE WAS GIVEN ^QO^(UNABLE TO MAKE)
     Route: 061
     Dates: start: 20130715

REACTIONS (7)
  - Anaemia [Unknown]
  - Toxic skin eruption [Recovered/Resolved]
  - Weight decreased [Unknown]
  - Renal failure acute [Recovered/Resolved]
  - Lymphopenia [Unknown]
  - Rash maculo-papular [Recovering/Resolving]
  - Hypokalaemia [Unknown]

NARRATIVE: CASE EVENT DATE: 20130715
